FAERS Safety Report 20569027 (Version 1)
Quarter: 2022Q1

REPORT INFORMATION
  Report Type: Report from Study
  Country: US (occurrence: US)
  Receive Date: 20220308
  Receipt Date: 20220308
  Transmission Date: 20220423
  Serious: Yes (Other)
  Sender: FDA-Public Use
  Company Number: US-JAZZ-2020-US-018544

PATIENT
  Age: 68 Year

DRUGS (3)
  1. DEFITELIO [Suspect]
     Active Substance: DEFIBROTIDE SODIUM
     Indication: Prophylaxis
  2. DEFITELIO [Suspect]
     Active Substance: DEFIBROTIDE SODIUM
     Indication: Venoocclusive liver disease
  3. URSODIOL [Concomitant]
     Active Substance: URSODIOL
     Indication: Prophylaxis

REACTIONS (6)
  - Ascites [Recovered/Resolved]
  - Renal failure [Recovered/Resolved]
  - Weight increased [Recovered/Resolved]
  - Blood bilirubin increased [Recovered/Resolved]
  - Hepatomegaly [Recovered/Resolved]
  - Off label use [Recovered/Resolved]
